FAERS Safety Report 13827091 (Version 1)
Quarter: 2017Q3

REPORT INFORMATION
  Report Type: Spontaneous
  Country: US (occurrence: US)
  Receive Date: 20170802
  Receipt Date: 20170802
  Transmission Date: 20171127
  Serious: No
  Sender: FDA-Public Use
  Company Number: US-ROCHE-672832

PATIENT
  Age: 56 Year
  Sex: Female
  Weight: 53.5 kg

DRUGS (2)
  1. BONIVA [Suspect]
     Active Substance: IBANDRONATE SODIUM
     Indication: OSTEOPOROSIS
     Dosage: OTHER INDICATION: OSTEOGENESIS IMPERFECTA, THERAPY START; APRIL/MAY 2006, THERAPY STOP IN FALL 2006.
     Route: 048
  2. BONIVA [Suspect]
     Active Substance: IBANDRONATE SODIUM
     Route: 048
     Dates: start: 2007, end: 20091027

REACTIONS (13)
  - Tremor [Unknown]
  - Headache [Unknown]
  - Stress [Unknown]
  - Arthritis [Unknown]
  - Weight decreased [Unknown]
  - Dizziness [Unknown]
  - Anxiety [Unknown]
  - Dyspnoea [Unknown]
  - Palpitations [Unknown]
  - Tinnitus [Unknown]
  - Grief reaction [Unknown]
  - Insomnia [Unknown]
  - Swelling [Unknown]

NARRATIVE: CASE EVENT DATE: 200905
